FAERS Safety Report 9116703 (Version 2)
Quarter: 2013Q1

REPORT INFORMATION
  Report Type: Spontaneous
  Country: US (occurrence: US)
  Receive Date: 20130225
  Receipt Date: 20130304
  Transmission Date: 20140127
  Serious: Yes (Other)
  Sender: FDA-Public Use
  Company Number: US-PFIZER INC-2013065164

PATIENT
  Age: 87 Year
  Sex: Female
  Weight: 79.37 kg

DRUGS (10)
  1. DETROL LA [Suspect]
     Indication: POLLAKIURIA
     Dosage: 4 MG, 1X/DAY
     Route: 048
     Dates: start: 20121225, end: 20121229
  2. ZOLOFT [Concomitant]
     Indication: ANXIETY
     Dosage: 100 MG, 1X/DAY
  3. PROCARDIA [Concomitant]
     Indication: CARDIAC DISORDER
     Dosage: 60 MG, 1X/DAY
  4. PROCARDIA [Concomitant]
     Indication: BLOOD PRESSURE ABNORMAL
  5. BABY ASPIRIN [Concomitant]
     Indication: CARDIAC DISORDER
     Dosage: 81 MG, 1X/DAY
  6. K-LOR [Concomitant]
     Indication: BLOOD POTASSIUM
     Dosage: 20 MG, 1X/DAY
  7. HYDROCHLOROTHIAZIDE [Concomitant]
     Indication: HYPERTENSION
     Dosage: 12.5 MG, 1X/DAY
  8. ARICEPT [Concomitant]
     Indication: MEMORY IMPAIRMENT
     Dosage: 10 MG, 1X/DAY
  9. POTASSIUM [Concomitant]
     Dosage: UNK
  10. PRILOSEC [Concomitant]
     Indication: GASTROOESOPHAGEAL REFLUX DISEASE
     Dosage: 20 MG, 1X/DAY

REACTIONS (3)
  - Paranoia [Recovered/Resolved]
  - Disorientation [Recovered/Resolved]
  - Confusional state [Recovered/Resolved]
